FAERS Safety Report 18886949 (Version 2)
Quarter: 2021Q1

REPORT INFORMATION
  Report Type: Other
  Country: US (occurrence: US)
  Receive Date: 20210212
  Receipt Date: 20210217
  Transmission Date: 20210420
  Serious: Yes (Other)
  Sender: FDA-Public Use
  Company Number: US-ROCHE-2762757

PATIENT
  Sex: Female
  Weight: 66.6 kg

DRUGS (9)
  1. LASIX [Concomitant]
     Active Substance: FUROSEMIDE
     Dosage: 80 MG IN THE MORNING AND 40 MG AT NIGHT
  2. LIALDA [Concomitant]
     Active Substance: MESALAMINE
     Dosage: TAKE 2 TABLET BY MOUTH DAILY WITH BREAKFAST.
     Route: 048
  3. LASIX [Concomitant]
     Active Substance: FUROSEMIDE
     Dosage: TAKE 2 TABLET BY MOUTH DAILY
     Route: 048
  4. ELIQUIS [Concomitant]
     Active Substance: APIXABAN
     Dosage: TAKE 1 TABLET BY MOUTH 2 TIMES A DAY
     Route: 048
  5. DELTASONE [Concomitant]
     Active Substance: PREDNISONE
     Dosage: TAKE 2 TABLET (40 MG) BY MOUTH DAILY 2 TABLET FOR 7 DAYS, THEN 1 TABLET FOR 7 DAYS, THEN 0.5 TABLET
  6. BUSPAR [Concomitant]
     Active Substance: BUSPIRONE HYDROCHLORIDE
     Dosage: TAKE 1 TABLET BY MOUTH 2 TIMES A DAY
     Route: 048
  7. EUTHYROX [Concomitant]
     Active Substance: LEVOTHYROXINE SODIUM
     Dosage: TAKE 1 TABLET  BY MOUTH ONCE DAILY
     Route: 048
  8. ESBRIET [Suspect]
     Active Substance: PIRFENIDONE
     Indication: IDIOPATHIC PULMONARY FIBROSIS
     Route: 065
  9. ALBUTEROL. [Concomitant]
     Active Substance: ALBUTEROL
     Dosage: AS NEEDED

REACTIONS (1)
  - Colitis ulcerative [Unknown]
